FAERS Safety Report 25529740 (Version 3)
Quarter: 2025Q4

REPORT INFORMATION
  Report Type: Spontaneous
  Country: EU (occurrence: EU)
  Receive Date: 20250708
  Receipt Date: 20251202
  Transmission Date: 20260118
  Serious: Yes (Hospitalization, Disabling, Other)
  Sender: BRISTOL-MYERS SQUIBB COMPANY
  Company Number: None

PATIENT
  Age: 67 Year
  Sex: Male
  Weight: 92 kg

DRUGS (3)
  1. KRAZATI [Suspect]
     Active Substance: ADAGRASIB
     Indication: Lung adenocarcinoma
     Dosage: 200 MG 2X/DAY
     Route: 048
     Dates: start: 20231201
  2. ELIQUIS [Concomitant]
     Active Substance: APIXABAN
     Indication: Cardiovascular event prophylaxis
     Route: 048
  3. CHOLECALCIFEROL [Concomitant]
     Active Substance: CHOLECALCIFEROL
     Indication: Vitamin supplementation
     Dosage: IN AMPOULE
     Route: 048

REACTIONS (1)
  - Polyradiculoneuropathy [Not Recovered/Not Resolved]

NARRATIVE: CASE EVENT DATE: 20250612
